FAERS Safety Report 24546770 (Version 1)
Quarter: 2024Q4

REPORT INFORMATION
  Report Type: Spontaneous
  Country: EG (occurrence: EG)
  Receive Date: 20241024
  Receipt Date: 20241024
  Transmission Date: 20250115
  Serious: Yes (Life-Threatening, Hospitalization, Other)
  Sender: NOVO NORDISK
  Company Number: EG-NOVOPROD-1302533

PATIENT
  Age: 100 Month
  Sex: Male
  Weight: 32 kg

DRUGS (7)
  1. APEXIDONE [Concomitant]
     Indication: Prophylaxis
     Dosage: HALF OF DROPPER CONTENT
     Route: 048
     Dates: start: 20240626
  2. TRESIBA [Suspect]
     Active Substance: INSULIN DEGLUDEC
     Indication: Diabetes mellitus
     Dosage: 14 IU, QD
     Route: 058
     Dates: start: 20240227
  3. NOVORAPID [Suspect]
     Active Substance: INSULIN ASPART
     Indication: Diabetes mellitus
     Dosage: SMALL UNITS THEN (10 U,15 U ,15 U, 10 U) TOTAL 45 U, COULD BE 50 U IN HYPERGLYCEMIA
     Route: 058
     Dates: start: 20240227
  4. CORTISONE [Concomitant]
     Active Substance: CORTISONE
     Dosage: UNK
     Dates: start: 20240318, end: 202405
  5. LANTUS [Concomitant]
     Active Substance: INSULIN GLARGINE
     Indication: Product used for unknown indication
     Dosage: UNK
  6. HUMALOG [Concomitant]
     Active Substance: INSULIN LISPRO
     Indication: Product used for unknown indication
     Dosage: 2 OR 4 U
  7. OXYMED [OXYTOCIN] [Concomitant]
     Indication: Brain neoplasm
     Dosage: UNK

REACTIONS (4)
  - Autoimmune disorder [Not Recovered/Not Resolved]
  - Condition aggravated [Not Recovered/Not Resolved]
  - Hyperglycaemia [Not Recovered/Not Resolved]
  - Condition aggravated [Not Recovered/Not Resolved]

NARRATIVE: CASE EVENT DATE: 20240626
